FAERS Safety Report 17333399 (Version 1)
Quarter: 2020Q1

REPORT INFORMATION
  Report Type: Spontaneous
  Country: US (occurrence: US)
  Receive Date: 20200128
  Receipt Date: 20200128
  Transmission Date: 20200409
  Serious: No
  Sender: FDA-Public Use
  Company Number: US-009507513-2001USA008628

PATIENT
  Age: 38 Year
  Sex: Female

DRUGS (9)
  1. CLOMIPHENE CITRATE. [Concomitant]
     Active Substance: CLOMIPHENE CITRATE
  2. LEUPROLIDE [Concomitant]
     Active Substance: LEUPROLIDE
  3. FOLLISTIM AQ [Suspect]
     Active Substance: FOLLITROPIN
     Indication: INFERTILITY FEMALE
     Dosage: STRENGTH: 900 IU/1.08 ML, 300 UNITS, QPM
     Route: 058
     Dates: start: 20190514
  4. FOLLISTIM AQ [Suspect]
     Active Substance: FOLLITROPIN
  5. GANIRELIX ACETATE INJECTION [Suspect]
     Active Substance: GANIRELIX ACETATE
     Dosage: 1 SRY, QD
     Route: 058
  6. PREGNYL [Concomitant]
     Active Substance: CHORIOGONADOTROPIN ALFA
  7. MENOPUR [Concomitant]
     Active Substance: FOLLITROPIN\LUTEINIZING HORMONE
  8. IRON (UNSPECIFIED) (+) MINERALS (UNSPECIFIED) (+) VITAMINS (UNSPECIFIE [Concomitant]
     Active Substance: IRON\MINERALS\VITAMINS
  9. DEXAMETHASONE. [Concomitant]
     Active Substance: DEXAMETHASONE

REACTIONS (2)
  - Injection site bruising [Unknown]
  - Injection site pain [Unknown]

NARRATIVE: CASE EVENT DATE: 201912
